FAERS Safety Report 5868117-2 (Version None)
Quarter: 2008Q3

REPORT INFORMATION
  Report Type: 
  Country: None (occurrence: None)
  Receive Date: 20080902
  Receipt Date: 20080825
  Transmission Date: 20090109
  Serious: Yes (Life-Threatening, Hospitalization)
  Sender: FDA-Public Use
  Company Number: US-ABBOTT-08P-163-0456772-00

PATIENT
  Sex: Male
  Weight: 63.106 kg

DRUGS (12)
  1. RITONAVIR SOFT GELATIN CAPSULES [Suspect]
     Indication: HIV INFECTION
     Route: 048
     Dates: start: 20070918, end: 20080605
  2. RITONAVIR SOFT GELATIN CAPSULES [Suspect]
     Route: 048
     Dates: start: 20080608
  3. DARUNAVIR (PREZISTA) [Concomitant]
     Indication: HIV INFECTION
     Route: 048
     Dates: start: 20070918, end: 20080605
  4. DARUNAVIR (PREZISTA) [Concomitant]
     Route: 048
     Dates: start: 20080608
  5. BACTRIM [Concomitant]
     Indication: OPPORTUNISTIC INFECTION PROPHYLAXIS
     Dosage: 800/160MG
     Route: 048
  6. AZITHROMYCIN [Concomitant]
     Indication: OPPORTUNISTIC INFECTION PROPHYLAXIS
     Route: 048
  7. TYLOX [Concomitant]
     Indication: ARTHRALGIA
     Dosage: 5/325MG
     Route: 048
  8. NABUMETONE [Concomitant]
     Indication: ARTHRALGIA
     Route: 048
  9. VALACYCLOVIR [Concomitant]
     Indication: HERPES SIMPLEX
     Route: 048
  10. VALACYCLOVIR [Concomitant]
     Indication: ANAL ULCER
  11. ACYCLOVIR [Concomitant]
     Indication: HERPES SIMPLEX
     Route: 061
  12. ACYCLOVIR [Concomitant]
     Indication: ANAL ULCER

REACTIONS (2)
  - DEEP VEIN THROMBOSIS [None]
  - PULMONARY EMBOLISM [None]
